FAERS Safety Report 8615366-6 (Version None)
Quarter: 2012Q3

REPORT INFORMATION
  Report Type: 
  Country: None (occurrence: None)
  Receive Date: 20120823
  Receipt Date: 20120817
  Transmission Date: 20120928
  Serious: No
  Sender: FDA-Public Use
  Company Number: US-BAYER-2012-085613

PATIENT
  Age: 81 Year
  Sex: Female

DRUGS (1)
  1. GADAVIST [Suspect]
     Indication: IMAGING PROCEDURE
     Dosage: 6 ML, ONCE
     Dates: start: 20120817

REACTIONS (2)
  - SENSATION OF FOREIGN BODY [None]
  - VOMITING [None]
